FAERS Safety Report 19666210 (Version 1)
Quarter: 2021Q3

REPORT INFORMATION
  Report Type: Spontaneous
  Country: US (occurrence: US)
  Receive Date: 20210806
  Receipt Date: 20210806
  Transmission Date: 20211014
  Serious: No
  Sender: FDA-Public Use
  Company Number: None

PATIENT
  Age: 32 Year
  Sex: Female
  Weight: 56.25 kg

DRUGS (4)
  1. IMDEVIMAB (REGN10987) [Suspect]
     Active Substance: IMDEVIMAB
     Indication: COVID-19
     Dosage: ?          OTHER FREQUENCY:ONCE;?
     Route: 041
  2. DIPHENHYDRAMINE 25MG IV PUSH [Concomitant]
     Dates: start: 20210804, end: 20210804
  3. CASIRIVIMAB (REGN10933) [Suspect]
     Active Substance: CASIRIVIMAB
     Indication: COVID-19
     Dosage: ?          OTHER FREQUENCY:ONCE;?
     Route: 041
  4. FAMOTIDINE 20MG IV PUSH [Concomitant]
     Dates: start: 20210804, end: 20210804

REACTIONS (7)
  - Exposure during pregnancy [None]
  - Cough [None]
  - Rash [None]
  - Nausea [None]
  - Flushing [None]
  - Tachycardia [None]
  - Infusion related reaction [None]

NARRATIVE: CASE EVENT DATE: 20210804
